FAERS Safety Report 4345072-8 (Version None)
Quarter: 2004Q2

REPORT INFORMATION
  Report Type: 
  Country: None (occurrence: None)
  Receive Date: 20040423
  Receipt Date: 20040414
  Transmission Date: 20050107
  Serious: Yes (Death)
  Sender: FDA-Public Use
  Company Number: JP-JNJFOC-20040200339

PATIENT
  Sex: Female

DRUGS (8)
  1. DUROTEP [Suspect]
     Route: 062
     Dates: start: 20040103, end: 20040108
  2. DUROTEP [Suspect]
     Indication: CANCER PAIN
     Route: 062
     Dates: start: 20040103, end: 20040108
  3. MORPHINE SULFATE [Suspect]
     Indication: CANCER PAIN
     Route: 049
     Dates: start: 20031212, end: 20040103
  4. FLURBIPROFEN AXETIL [Concomitant]
     Route: 041
     Dates: start: 20031228, end: 20040108
  5. MORPHINE HYDROCHLORIDE [Concomitant]
     Route: 049
     Dates: start: 20031228, end: 20040103
  6. MORPHINE HYDROCHLORIDE [Concomitant]
     Route: 054
     Dates: start: 20040103, end: 20040108
  7. MORPHINE HYDROCHLORIDE [Concomitant]
     Route: 058
     Dates: start: 20040104, end: 20040105
  8. PAMIDRONATE DISODIUM [Concomitant]
     Route: 042

REACTIONS (5)
  - ANXIETY [None]
  - CARDIAC FAILURE [None]
  - DRUG INTERACTION [None]
  - PERICARDIAL EFFUSION [None]
  - RESPIRATORY DEPRESSION [None]
